FAERS Safety Report 7571492-4 (Version None)
Quarter: 2011Q2

REPORT INFORMATION
  Report Type: 
  Country: None (occurrence: None)
  Receive Date: 20110624
  Receipt Date: 20110610
  Transmission Date: 20111010
  Serious: Yes (Other)
  Sender: FDA-Public Use
  Company Number: CA-JNJFOC-20110606426

PATIENT
  Sex: Female
  Weight: 90 kg

DRUGS (3)
  1. MUSCLE RELAXANT [Concomitant]
  2. REMICADE [Suspect]
     Indication: COLITIS ULCERATIVE
     Dosage: PT HAS HAD 33 INFUSIONS
     Route: 042
  3. FENTANYL-100 [Concomitant]

REACTIONS (1)
  - RECTAL HAEMORRHAGE [None]
